FAERS Safety Report 7936901-7 (Version None)
Quarter: 2011Q4

REPORT INFORMATION
  Report Type: 
  Country: None (occurrence: None)
  Receive Date: 20111123
  Receipt Date: 20111111
  Transmission Date: 20120403
  Serious: Yes (Hospitalization)
  Sender: FDA-Public Use
  Company Number: IR-MYLANLABS-2011S1023708

PATIENT
  Age: 55 Year
  Sex: Male

DRUGS (4)
  1. BROMOCRIPTINE MESYLATE [Suspect]
     Indication: APHASIA
     Dosage: 2.5MG
     Route: 065
  2. BROMOCRIPTINE MESYLATE [Suspect]
     Dosage: 5MG
     Route: 065
  3. BROMOCRIPTINE MESYLATE [Suspect]
     Dosage: 7.5MG
     Route: 065
  4. WARFARIN SODIUM [Concomitant]
     Indication: CONGENITAL HEART VALVE DISORDER
     Route: 065

REACTIONS (1)
  - TRIGEMINAL NEURALGIA [None]
